FAERS Safety Report 9656642 (Version 1)
Quarter: 2013Q4

REPORT INFORMATION
  Report Type: Spontaneous
  Country: JP (occurrence: JP)
  Receive Date: 20131030
  Receipt Date: 20131030
  Transmission Date: 20140711
  Serious: Yes (Hospitalization)
  Sender: FDA-Public Use
  Company Number: JP-ASTELLAS-2013JP011816

PATIENT
  Age: 73 Year
  Sex: Male

DRUGS (4)
  1. PROGRAF [Suspect]
     Indication: RHEUMATOID ARTHRITIS
     Dosage: 1 MG, UID/QD
     Route: 048
     Dates: start: 20130517, end: 20130813
  2. SIMPONI [Suspect]
     Indication: RHEUMATOID ARTHRITIS
     Dosage: UNK
     Route: 058
     Dates: start: 20120801, end: 20130712
  3. ACTEMRA [Suspect]
     Indication: RHEUMATOID ARTHRITIS
     Dosage: 162 MG, UID/QD
     Route: 058
     Dates: start: 20130813, end: 20130827
  4. IMURAN /00001501/ [Suspect]
     Indication: RHEUMATOID ARTHRITIS
     Dosage: 50 MG, UID/QD
     Route: 048

REACTIONS (3)
  - Intentional drug misuse [Unknown]
  - Liver disorder [Not Recovered/Not Resolved]
  - Hepatitis B virus test positive [Recovering/Resolving]
